FAERS Safety Report 18641181 (Version 4)
Quarter: 2021Q2

REPORT INFORMATION
  Report Type: Spontaneous
  Country: US (occurrence: US)
  Receive Date: 20201221
  Receipt Date: 20210415
  Transmission Date: 20210717
  Serious: Yes (Other)
  Sender: FDA-Public Use
  Company Number: US-GILEAD-2020-0509289

PATIENT
  Sex: Female
  Weight: 73.92 kg

DRUGS (41)
  1. AZITHROMYCIN ANHYDROUS. [Concomitant]
     Active Substance: AZITHROMYCIN ANHYDROUS
  2. LANTUS [Concomitant]
     Active Substance: INSULIN GLARGINE
  3. PREDNISONE. [Concomitant]
     Active Substance: PREDNISONE
  4. PRAVASTATIN. [Concomitant]
     Active Substance: PRAVASTATIN
  5. OMEGA 3 FISH OILS [Concomitant]
     Active Substance: OMEGA-3 FATTY ACIDS
  6. KALETRA [Concomitant]
     Active Substance: LOPINAVIR\RITONAVIR
  7. DAILY VITAMINS [Concomitant]
     Active Substance: VITAMINS
  8. FLUTICASONE. [Concomitant]
     Active Substance: FLUTICASONE
  9. SENNA [Concomitant]
     Active Substance: SENNA LEAF\SENNOSIDES\SENNOSIDES A AND B
  10. VITAMIN C [Concomitant]
     Active Substance: ASCORBIC ACID
  11. AMLODIPINE [Concomitant]
     Active Substance: AMLODIPINE BESYLATE
  12. AMOXICILLIN. [Concomitant]
     Active Substance: AMOXICILLIN
  13. ARTIFICIAL TEARS [Concomitant]
     Active Substance: GLYCERIN\HYPROMELLOSES\POLYETHYLENE GLYCOL 400
  14. CARVEDILOL. [Concomitant]
     Active Substance: CARVEDILOL
  15. CLOTRIMAZOL [Concomitant]
     Active Substance: CLOTRIMAZOLE
  16. HUMALOG [Concomitant]
     Active Substance: INSULIN LISPRO
  17. CLOBETASOL [Concomitant]
     Active Substance: CLOBETASOL
  18. NEPHRO [Concomitant]
  19. CALPHRON [Concomitant]
  20. NITROFURANTOIN MACROCRYSTALS [Concomitant]
     Active Substance: NITROFURANTOIN
  21. BONIVA [Concomitant]
     Active Substance: IBANDRONATE SODIUM
  22. DOCUSATE [Concomitant]
     Active Substance: DOCUSATE
  23. HYDROQUINONE. [Concomitant]
     Active Substance: HYDROQUINONE
  24. TRUVADA [Suspect]
     Active Substance: EMTRICITABINE\TENOFOVIR DISOPROXIL FUMARATE
     Dosage: UNK
     Route: 048
     Dates: start: 2005, end: 2011
  25. DESCOVY [Concomitant]
     Active Substance: EMTRICITABINE\TENOFOVIR ALAFENAMIDE FUMARATE
  26. CALCIUM [Concomitant]
     Active Substance: CALCIUM
  27. CICLOPIROX. [Concomitant]
     Active Substance: CICLOPIROX
  28. OXYCODONE [Concomitant]
     Active Substance: OXYCODONE
  29. VITAMIN D3 [Concomitant]
     Active Substance: CHOLECALCIFEROL
  30. VITAMIN B12 [Concomitant]
     Active Substance: CYANOCOBALAMIN
  31. TRUVADA [Suspect]
     Active Substance: EMTRICITABINE\TENOFOVIR DISOPROXIL FUMARATE
     Indication: HIV INFECTION
     Dosage: UNK
     Route: 048
     Dates: start: 2013
  32. TIVICAY [Concomitant]
     Active Substance: DOLUTEGRAVIR SODIUM
  33. HYDROXYZINE [Concomitant]
     Active Substance: HYDROXYZINE HYDROCHLORIDE
  34. LIDOCAINE. [Concomitant]
     Active Substance: LIDOCAINE
  35. METRONIDAZOLE. [Concomitant]
     Active Substance: METRONIDAZOLE
  36. VITAMIN E [Concomitant]
     Active Substance: .ALPHA.-TOCOPHEROL
  37. ATORVASTATIN [Concomitant]
     Active Substance: ATORVASTATIN
  38. CALCITRIOL. [Concomitant]
     Active Substance: CALCITRIOL
  39. LEVOTHYROXIN [Concomitant]
     Active Substance: LEVOTHYROXINE
  40. POLYETHYLENE [Concomitant]
     Active Substance: HIGH DENSITY POLYETHYLENE
  41. TIROSINT [Concomitant]
     Active Substance: LEVOTHYROXINE SODIUM

REACTIONS (9)
  - Osteoporosis [Unknown]
  - Anxiety [Unknown]
  - Emotional distress [Unknown]
  - Bone density decreased [Not Recovered/Not Resolved]
  - Chronic kidney disease [Not Recovered/Not Resolved]
  - Renal impairment [Unknown]
  - Pain [Unknown]
  - Renal impairment [Not Recovered/Not Resolved]
  - Anhedonia [Unknown]

NARRATIVE: CASE EVENT DATE: 2010
